FAERS Safety Report 19486887 (Version 1)
Quarter: 2021Q3

REPORT INFORMATION
  Report Type: Spontaneous
  Country: FR (occurrence: FR)
  Receive Date: 20210702
  Receipt Date: 20210702
  Transmission Date: 20211014
  Serious: Yes (Hospitalization)
  Sender: FDA-Public Use
  Company Number: FR-ORGANON-O2106FRA002408

PATIENT
  Age: 89 Year
  Sex: Female
  Weight: 83 kg

DRUGS (4)
  1. LIPTRUZET [Suspect]
     Active Substance: ATORVASTATIN CALCIUM\EZETIMIBE
     Indication: HYPERCHOLESTEROLAEMIA
     Dosage: 1 DOSAGE FORM, QD; FILM?COATED TABLET
     Route: 048
     Dates: start: 2018, end: 20210524
  2. CIRCADIN [Concomitant]
     Active Substance: MELATONIN
     Dosage: UNK
  3. COMIRNATY [Suspect]
     Active Substance: TOZINAMERAN
     Indication: COVID-19 IMMUNISATION
     Dosage: 1 DOSAGE FORM, CYCLICAL; CONCENTRATE FOR DISPERSION FOR INJECTION. MNRA COVID?19 VACCIN (NUCLEOSIDE
     Route: 030
     Dates: start: 20210518, end: 20210518
  4. ELIQUIS [Concomitant]
     Active Substance: APIXABAN
     Dosage: UNK

REACTIONS (1)
  - Myositis [Recovering/Resolving]

NARRATIVE: CASE EVENT DATE: 20210604
